FAERS Safety Report 14347257 (Version 1)
Quarter: 2018Q1

REPORT INFORMATION
  Report Type: Spontaneous
  Country: US (occurrence: US)
  Receive Date: 20180103
  Receipt Date: 20180103
  Transmission Date: 20180509
  Serious: Yes (Life-Threatening, Hospitalization)
  Sender: FDA-Public Use
  Company Number: US-LINDE-US-LHC-2017263

PATIENT
  Age: 50 Year
  Sex: Female

DRUGS (1)
  1. NITROGEN (GENERIC) [Suspect]
     Active Substance: NITROGEN
     Indication: OCCUPATIONAL EXPOSURE TO PRODUCT

REACTIONS (4)
  - Occupational exposure to product [Unknown]
  - Frostbite [Unknown]
  - Asphyxia [Unknown]
  - Mental status changes [Unknown]
